FAERS Safety Report 16776464 (Version 3)
Quarter: 2019Q3

REPORT INFORMATION
  Report Type: Spontaneous
  Country: US (occurrence: US)
  Receive Date: 20190905
  Receipt Date: 20190917
  Transmission Date: 20191005
  Serious: Yes (Other)
  Sender: FDA-Public Use
  Company Number: US-PFIZER INC-2019378993

PATIENT
  Age: 61 Year
  Sex: Male

DRUGS (7)
  1. AMIODARONE HCL [Suspect]
     Active Substance: AMIODARONE HYDROCHLORIDE
     Indication: ATRIAL FIBRILLATION
     Dosage: UNK
  2. AMIODARONE HCL [Interacting]
     Active Substance: AMIODARONE HYDROCHLORIDE
     Indication: LEFT VENTRICULAR FAILURE
  3. WARFARIN [Interacting]
     Active Substance: WARFARIN
     Indication: LEFT VENTRICULAR FAILURE
  4. DILTIAZEM. [Concomitant]
     Active Substance: DILTIAZEM
     Indication: ATRIAL FIBRILLATION
     Dosage: UNK
  5. WARFARIN [Interacting]
     Active Substance: WARFARIN
     Indication: ATRIAL FIBRILLATION
     Dosage: UNK
  6. METOPROLOL. [Concomitant]
     Active Substance: METOPROLOL
     Indication: CHRONIC KIDNEY DISEASE
     Dosage: UNK
  7. DILTIAZEM. [Concomitant]
     Active Substance: DILTIAZEM
     Indication: LEFT VENTRICULAR FAILURE

REACTIONS (3)
  - Anticoagulation drug level above therapeutic [Unknown]
  - Drug interaction [Unknown]
  - Haemorrhage [Unknown]
